FAERS Safety Report 5865814-X (Version None)
Quarter: 2008Q3

REPORT INFORMATION
  Report Type: 
  Country: None (occurrence: None)
  Receive Date: 20080829
  Receipt Date: 20080820
  Transmission Date: 20090109
  Serious: Yes (Other)
  Sender: FDA-Public Use
  Company Number: DE-ASTRAZENECA-2008PK01834

PATIENT
  Age: 23702 Day
  Sex: Male
  Weight: 96 kg

DRUGS (1)
  1. ENTOCORT CAPSULE [Suspect]
     Indication: ILEITIS
     Route: 048
     Dates: start: 20080725, end: 20080812

REACTIONS (1)
  - VENTRICULAR EXTRASYSTOLES [None]
